FAERS Safety Report 5166824-0 (Version None)
Quarter: 2006Q4

REPORT INFORMATION
  Report Type: 
  Country: None (occurrence: None)
  Receive Date: 20061204
  Receipt Date: 20061204
  Transmission Date: 20070319
  Serious: Yes (Death)
  Sender: FDA-Public Use
  Company Number: None

PATIENT
  Age: 28 Year
  Sex: Male
  Weight: 102.0593 kg

DRUGS (1)
  1. FENTANYL [Suspect]
     Indication: MIGRAINE
     Dates: start: 20060828, end: 20060830

REACTIONS (1)
  - DRUG LEVEL CHANGED [None]
